FAERS Safety Report 5179800-9 (Version None)
Quarter: 2006Q4

REPORT INFORMATION
  Report Type: 
  Country: None (occurrence: None)
  Receive Date: 20061211
  Receipt Date: 20061130
  Transmission Date: 20070319
  Serious: Yes (Hospitalization)
  Sender: FDA-Public Use
  Company Number: HQWYE310809NOV04

PATIENT
  Age: 56 Year
  Sex: Male

DRUGS (3)
  1. CORDARONE [Suspect]
     Indication: ATRIAL FIBRILLATION
     Dosage: 200 MG 1X PER 1 DAY
     Route: 048
     Dates: start: 19980101, end: 20000101
  2. TEGRETOL [Concomitant]
  3. EFFEXOR [Concomitant]

REACTIONS (5)
  - ALVEOLITIS [None]
  - ATRIAL FIBRILLATION [None]
  - DRUG INEFFECTIVE [None]
  - PNEUMONIA [None]
  - PULMONARY FIBROSIS [None]
